FAERS Safety Report 11870411 (Version 1)
Quarter: 2015Q4

REPORT INFORMATION
  Report Type: Spontaneous
  Country: US (occurrence: US)
  Receive Date: 20151228
  Receipt Date: 20151228
  Transmission Date: 20160305
  Serious: Yes (Hospitalization)
  Sender: FDA-Public Use
  Company Number: US-SA-2014SA163601

PATIENT
  Age: 79 Year
  Sex: Female

DRUGS (20)
  1. LOPRESSOR [Concomitant]
     Active Substance: METOPROLOL TARTRATE
     Dosage: 2.5MG
     Route: 042
     Dates: start: 20110203, end: 20110203
  2. CARDIZEM [Concomitant]
     Active Substance: DILTIAZEM HYDROCHLORIDE
  3. LISINOPRIL. [Concomitant]
     Active Substance: LISINOPRIL
  4. MORPHINE [Concomitant]
     Active Substance: MORPHINE
     Dosage: 2MG
     Route: 042
     Dates: start: 20110203
  5. SYNTHROID [Concomitant]
     Active Substance: LEVOTHYROXINE SODIUM
  6. NITRO [Concomitant]
     Active Substance: NITROGLYCERIN
     Dosage: IN TO CHEST WALL
     Dates: start: 20110203
  7. LOPRESSOR [Concomitant]
     Active Substance: METOPROLOL TARTRATE
     Dosage: 2.5MG
     Route: 042
     Dates: start: 20110203, end: 20110203
  8. LOPRESSOR [Concomitant]
     Active Substance: METOPROLOL TARTRATE
     Dosage: 25MG
     Route: 048
     Dates: start: 20110203
  9. HEPARIN [Concomitant]
     Active Substance: HEPARIN SODIUM
     Dosage: 9.3 ML DOSE:4000 UNIT(S)
     Route: 040
     Dates: start: 20110203
  10. FAMOTIDINE. [Concomitant]
     Active Substance: FAMOTIDINE
  11. LOVASTATIN. [Concomitant]
     Active Substance: LOVASTATIN
  12. HEPARIN [Concomitant]
     Active Substance: HEPARIN SODIUM
     Dosage: 9.3 ML
     Dates: start: 20110203, end: 20110203
  13. PLAVIX [Suspect]
     Active Substance: CLOPIDOGREL BISULFATE
     Route: 065
     Dates: end: 201211
  14. ASA [Concomitant]
     Active Substance: ASPIRIN
     Dosage: 81MGX3
     Dates: start: 20110203
  15. PEPCID [Concomitant]
     Active Substance: FAMOTIDINE
     Dosage: 20MG
     Route: 048
     Dates: start: 20110203
  16. LOPRESSOR [Concomitant]
     Active Substance: METOPROLOL TARTRATE
     Dosage: 2.5MG
     Route: 042
     Dates: start: 20110203, end: 20110203
  17. LOPRESSOR [Concomitant]
     Active Substance: METOPROLOL TARTRATE
     Dosage: 2.5MG
     Route: 042
     Dates: start: 20110203, end: 20110203
  18. LASIX [Concomitant]
     Active Substance: FUROSEMIDE
  19. ASPIRIN. [Concomitant]
     Active Substance: ASPIRIN
  20. LEVOTHYROXINE. [Concomitant]
     Active Substance: LEVOTHYROXINE

REACTIONS (2)
  - Gastrointestinal haemorrhage [Recovered/Resolved]
  - Haemoglobin decreased [Recovered/Resolved]

NARRATIVE: CASE EVENT DATE: 20121106
